FAERS Safety Report 18886010 (Version 1)
Quarter: 2021Q1

REPORT INFORMATION
  Report Type: Spontaneous
  Country: US (occurrence: US)
  Receive Date: 20210212
  Receipt Date: 20210212
  Transmission Date: 20210420
  Serious: Yes (Other)
  Sender: FDA-Public Use
  Company Number: US-COVIS PHARMA GMBH-2021COV00041

PATIENT
  Sex: Female

DRUGS (4)
  1. ALVESCO [Suspect]
     Active Substance: CICLESONIDE
     Dosage: 320 ?G (2 PUFFS), 2X/DAY WHEN SICK
  2. ALVESCO [Suspect]
     Active Substance: CICLESONIDE
     Dosage: 160 ?G (1 PUFF), 2X/DAY
  3. ALVESCO [Suspect]
     Active Substance: CICLESONIDE
     Dosage: 320 ?G (2 PUFFS), 2X/DAY WHEN SICK
  4. ALVESCO [Suspect]
     Active Substance: CICLESONIDE
     Indication: ASTHMA
     Dosage: 160 ?G (1 PUFF), 2X/DAY

REACTIONS (7)
  - Poor quality device used [Not Recovered/Not Resolved]
  - Device difficult to use [Not Recovered/Not Resolved]
  - Incorrect dose administered by device [Not Recovered/Not Resolved]
  - Nasopharyngitis [Unknown]
  - Spondyloarthropathy [Not Recovered/Not Resolved]
  - Autoinflammatory disease [Not Recovered/Not Resolved]
  - Cough [Not Recovered/Not Resolved]
